FAERS Safety Report 7185802-3 (Version None)
Quarter: 2010Q4

REPORT INFORMATION
  Report Type: 
  Country: None (occurrence: None)
  Receive Date: 20101222
  Receipt Date: 20100609
  Transmission Date: 20110411
  Serious: No
  Sender: FDA-Public Use
  Company Number: US-AMGEN-KDL417464

PATIENT

DRUGS (1)
  1. ENBREL [Suspect]
     Indication: PSORIASIS
     Dosage: 50 MG, QWK
     Route: 058
     Dates: start: 20081211, end: 20100409

REACTIONS (4)
  - ARTHRALGIA [None]
  - GOUT [None]
  - JOINT RANGE OF MOTION DECREASED [None]
  - JOINT SWELLING [None]
